FAERS Safety Report 10777953 (Version 1)
Quarter: 2015Q1

REPORT INFORMATION
  Report Type: Spontaneous
  Country: US (occurrence: US)
  Receive Date: 20150209
  Receipt Date: 20150209
  Transmission Date: 20150721
  Serious: No
  Sender: FDA-Public Use
  Company Number: US-AMGEN-USASP2014024037

PATIENT
  Age: 60 Year
  Sex: Female

DRUGS (17)
  1. HERCEPTIN [Suspect]
     Active Substance: TRASTUZUMAB
     Dosage: 529 MG, UNK
     Route: 042
  2. CARBOPLATIN. [Concomitant]
     Active Substance: CARBOPLATIN
     Dosage: 882 MG, UNK
     Dates: start: 20111118
  3. TAXOTERE [Concomitant]
     Active Substance: DOCETAXEL
     Dosage: UNK
     Dates: start: 20111118
  4. CARBOPLATIN. [Concomitant]
     Active Substance: CARBOPLATIN
     Dosage: 673 MG, UNK
     Dates: start: 20111229
  5. DECADRON [Concomitant]
     Active Substance: DEXAMETHASONE
     Dosage: 10 MG, UNK
     Dates: start: 20111028
  6. DECADRON [Concomitant]
     Active Substance: DEXAMETHASONE
     Dosage: UNK
     Dates: start: 20111229
  7. NEULASTA [Suspect]
     Active Substance: PEGFILGRASTIM
     Indication: PRODUCT USED FOR UNKNOWN INDICATION
     Dosage: 6 MG, UNK
     Route: 065
  8. CARBOPLATIN. [Concomitant]
     Active Substance: CARBOPLATIN
     Dosage: 784 MG, UNK
     Dates: start: 20111028
  9. ALOXI [Concomitant]
     Active Substance: PALONOSETRON HYDROCHLORIDE
     Dosage: 250 MG, UNK
     Dates: start: 20111229
  10. HERCEPTIN [Suspect]
     Active Substance: TRASTUZUMAB
     Dosage: 530 MG, UNK
     Route: 042
  11. TAXOTERE [Concomitant]
     Active Substance: DOCETAXEL
     Dosage: 153 MG, UNK
     Dates: start: 20111028
  12. EMEND [Concomitant]
     Active Substance: APREPITANT
     Dosage: UNK
     Dates: start: 20111229
  13. HERCEPTIN [Suspect]
     Active Substance: TRASTUZUMAB
     Indication: BREAST CANCER
     Dosage: 705 MG, UNK
     Route: 042
     Dates: start: 20111006
  14. DECADRON [Concomitant]
     Active Substance: DEXAMETHASONE
     Dosage: UNK
     Dates: start: 20111118
  15. TAXOTERE [Concomitant]
     Active Substance: DOCETAXEL
     Dosage: UNK
     Dates: start: 20111229
  16. EMEND [Concomitant]
     Active Substance: APREPITANT
     Dosage: UNK
     Dates: start: 20111118
  17. EMEND [Concomitant]
     Active Substance: APREPITANT
     Dosage: 150 MG, UNK
     Route: 042
     Dates: start: 20111028

REACTIONS (2)
  - Fatigue [Unknown]
  - Constipation [Unknown]
